FAERS Safety Report 12717053 (Version 4)
Quarter: 2018Q2

REPORT INFORMATION
  Report Type: Report from Study
  Country: JP (occurrence: JP)
  Receive Date: 20160906
  Receipt Date: 20180403
  Transmission Date: 20180711
  Serious: Yes (Hospitalization)
  Sender: FDA-Public Use
  Company Number: JP-ASTELLAS-2008JP005637

PATIENT
  Age: 31 Year
  Sex: Female

DRUGS (39)
  1. PREDNISOLONE. [Suspect]
     Active Substance: PREDNISOLONE
     Dosage: 15MG-10 MG, ALTERNATELY EVERY OTHER DAY
     Route: 048
     Dates: start: 20080227, end: 20080710
  2. PREDNISOLONE. [Suspect]
     Active Substance: PREDNISOLONE
     Route: 048
     Dates: start: 20110901, end: 20110918
  3. CEFZON [Concomitant]
     Active Substance: CEFDINIR
     Indication: UPPER RESPIRATORY TRACT INFLAMMATION
     Route: 048
     Dates: start: 20090611, end: 20090618
  4. TACROLIMUS. [Suspect]
     Active Substance: TACROLIMUS
     Route: 048
     Dates: start: 20140918
  5. PREDNISOLONE. [Suspect]
     Active Substance: PREDNISOLONE
     Route: 048
     Dates: start: 20110922, end: 20110926
  6. CALONAL [Concomitant]
     Active Substance: ACETAMINOPHEN
     Indication: UPPER RESPIRATORY TRACT INFLAMMATION
     Route: 048
     Dates: start: 20081116, end: 20081123
  7. TACROLIMUS. [Suspect]
     Active Substance: TACROLIMUS
     Route: 048
     Dates: start: 20130625, end: 20140917
  8. PREDNISOLONE. [Suspect]
     Active Substance: PREDNISOLONE
     Route: 048
     Dates: start: 20080710, end: 20090919
  9. PREDNISOLONE. [Suspect]
     Active Substance: PREDNISOLONE
     Route: 048
     Dates: start: 20111005, end: 20111220
  10. TACROLIMUS. [Suspect]
     Active Substance: TACROLIMUS
     Indication: LUPUS NEPHRITIS
     Route: 048
     Dates: start: 20070802, end: 20090330
  11. PREDNISOLONE. [Suspect]
     Active Substance: PREDNISOLONE
     Route: 048
     Dates: start: 20110927, end: 20111004
  12. PREDNISOLONE. [Suspect]
     Active Substance: PREDNISOLONE
     Route: 048
     Dates: start: 20130625, end: 20140917
  13. HUSTAZOL [Concomitant]
     Active Substance: CLOPERASTINE
     Route: 048
     Dates: start: 20090611, end: 20090618
  14. PREDNISOLONE. [Suspect]
     Active Substance: PREDNISOLONE
     Route: 048
     Dates: start: 20111221, end: 20120902
  15. METHYLPREDNISOLONE SODIUM SUCCINATE. [Concomitant]
     Active Substance: METHYLPREDNISOLONE SODIUM SUCCINATE
     Indication: SYSTEMIC LUPUS ERYTHEMATOSUS
     Route: 065
     Dates: start: 20110919, end: 20110921
  16. LASIX [Concomitant]
     Active Substance: FUROSEMIDE
     Indication: LUPUS NEPHRITIS
     Route: 048
     Dates: start: 20070802, end: 20071023
  17. DEPAS [Concomitant]
     Active Substance: ETIZOLAM
     Indication: ANXIETY
     Route: 048
     Dates: start: 20110919, end: 20120902
  18. DEPAS [Concomitant]
     Active Substance: ETIZOLAM
     Dosage: 0.5 MG, AS NEEDED
     Route: 048
     Dates: start: 20131121, end: 20141022
  19. PL [Concomitant]
     Active Substance: ACETAMINOPHEN\CAFFEINE\PROMETHAZINE\SALICYLAMIDE
     Route: 048
     Dates: start: 20090611, end: 20090618
  20. HUSTAZOL [Concomitant]
     Active Substance: CLOPERASTINE
     Indication: UPPER RESPIRATORY TRACT INFLAMMATION
     Route: 048
     Dates: start: 20081116, end: 20081123
  21. KLARICID [Concomitant]
     Active Substance: CLARITHROMYCIN
     Indication: UPPER RESPIRATORY TRACT INFLAMMATION
     Route: 048
     Dates: start: 20081116, end: 20081123
  22. VENAPASTA [Concomitant]
     Indication: ECZEMA
     Dosage: ADEQUATE DOSE
     Route: 061
     Dates: start: 20090721, end: 20090919
  23. TACROLIMUS. [Suspect]
     Active Substance: TACROLIMUS
     Route: 048
     Dates: start: 20100706, end: 20120902
  24. PREDNISOLONE. [Suspect]
     Active Substance: PREDNISOLONE
     Route: 048
     Dates: start: 20110823, end: 20110831
  25. MUCOSTA [Concomitant]
     Active Substance: REBAMIPIDE
     Indication: PROPHYLAXIS
     Route: 048
     Dates: start: 20070802, end: 20090919
  26. PL [Concomitant]
     Active Substance: ACETAMINOPHEN\CAFFEINE\PROMETHAZINE\SALICYLAMIDE
     Indication: UPPER RESPIRATORY TRACT INFLAMMATION
     Route: 048
     Dates: start: 20081116, end: 20081123
  27. TACROLIMUS. [Suspect]
     Active Substance: TACROLIMUS
     Route: 048
     Dates: start: 20090331, end: 20090919
  28. PREDNISOLONE. [Suspect]
     Active Substance: PREDNISOLONE
     Route: 048
     Dates: start: 20140918
  29. MUCOSTA [Concomitant]
     Active Substance: REBAMIPIDE
     Route: 048
     Dates: start: 20130625
  30. DEPAS [Concomitant]
     Active Substance: ETIZOLAM
     Indication: ANXIETY
     Dosage: UNK UNK, AS NEEDED
     Route: 048
     Dates: start: 20090526
  31. BISOLVON [Concomitant]
     Active Substance: BROMHEXINE HYDROCHLORIDE
     Indication: UPPER RESPIRATORY TRACT INFLAMMATION
     Route: 048
     Dates: start: 20081116, end: 20081123
  32. CALONAL [Concomitant]
     Active Substance: ACETAMINOPHEN
     Indication: SYSTEMIC LUPUS ERYTHEMATOSUS
     Route: 048
     Dates: start: 20130704, end: 20130807
  33. ETIZOLAM [Concomitant]
     Active Substance: ETIZOLAM
     Indication: ANXIETY
     Dosage: 0.5 MG, ONCE DAILY
     Route: 048
     Dates: start: 20130703, end: 20130703
  34. PREDNISOLONE. [Suspect]
     Active Substance: PREDNISOLONE
     Indication: LUPUS NEPHRITIS
     Route: 048
     Dates: end: 20070802
  35. PREDNISOLONE. [Suspect]
     Active Substance: PREDNISOLONE
     Route: 048
     Dates: start: 20070803, end: 20071023
  36. PREDNISOLONE. [Suspect]
     Active Substance: PREDNISOLONE
     Route: 048
     Dates: start: 20071024, end: 20080226
  37. NU-LOTAN [Concomitant]
     Active Substance: LOSARTAN POTASSIUM
     Indication: PRODUCT USED FOR UNKNOWN INDICATION
     Route: 048
     Dates: start: 20070802, end: 20090919
  38. MUCOSOLVAN [Concomitant]
     Active Substance: AMBROXOL HYDROCHLORIDE
     Indication: UPPER RESPIRATORY TRACT INFLAMMATION
     Route: 048
     Dates: start: 20090611, end: 20090618
  39. BROTIZOLAM [Concomitant]
     Active Substance: BROTIZOLAM
     Indication: ANXIETY
     Dosage: 0.25 MG, ONCE DAILY
     Route: 048
     Dates: start: 20110919, end: 20111114

REACTIONS (8)
  - Eczema [Recovered/Resolved]
  - Upper respiratory tract inflammation [Recovered/Resolved]
  - Gamma-glutamyltransferase increased [Recovering/Resolving]
  - Alanine aminotransferase increased [Recovered/Resolved]
  - Anxiety [Recovered/Resolved]
  - White blood cell count increased [Recovered/Resolved]
  - Anxiety [Recovered/Resolved]
  - Systemic lupus erythematosus [Recovered/Resolved]

NARRATIVE: CASE EVENT DATE: 20070913
